FAERS Safety Report 23805518 (Version 2)
Quarter: 2024Q3

REPORT INFORMATION
  Report Type: Spontaneous
  Country: GB (occurrence: GB)
  Receive Date: 20240502
  Receipt Date: 20240710
  Transmission Date: 20241017
  Serious: Yes (Hospitalization, Other)
  Sender: CELLTRION
  Company Number: GB-CELLTRION INC.-2023GB012703

PATIENT

DRUGS (2)
  1. INFLIXIMAB [Suspect]
     Active Substance: INFLIXIMAB
     Indication: Crohn^s disease
     Dosage: 120 MG PRE FILLED PEN PK2
     Route: 058
     Dates: start: 202303
  2. INFLIXIMAB [Suspect]
     Active Substance: INFLIXIMAB
     Dosage: 120 MG PRE FILLED PEN PK2
     Route: 058
     Dates: start: 202304

REACTIONS (7)
  - Wheezing [Unknown]
  - Cardiac disorder [Not Recovered/Not Resolved]
  - Speech disorder [Unknown]
  - Rhinalgia [Not Recovered/Not Resolved]
  - Medical device site infection [Unknown]
  - Intentional dose omission [Unknown]
  - Product use issue [Unknown]
